FAERS Safety Report 10258436 (Version 1)
Quarter: 2014Q2

REPORT INFORMATION
  Report Type: Spontaneous
  Country: US (occurrence: US)
  Receive Date: 20140625
  Receipt Date: 20140625
  Transmission Date: 20141212
  Serious: No
  Sender: FDA-Public Use
  Company Number: US-PFIZER INC-2014174837

PATIENT
  Age: 39 Year
  Sex: Female
  Weight: 68.03 kg

DRUGS (3)
  1. SERTRALINE HCL [Suspect]
     Indication: DEPRESSION
     Dosage: 100 MG, DAILY
     Dates: start: 2011
  2. SERTRALINE HCL [Suspect]
     Indication: ANXIETY
     Dosage: 200 MG, DAILY
     Dates: start: 2014, end: 20140622
  3. CONCERTA [Concomitant]
     Indication: ATTENTION DEFICIT/HYPERACTIVITY DISORDER
     Dosage: 54 MG, DAILY

REACTIONS (1)
  - Alopecia [Not Recovered/Not Resolved]
